FAERS Safety Report 9593870 (Version 1)
Quarter: 2013Q3

REPORT INFORMATION
  Report Type: Spontaneous
  Country: US (occurrence: None)
  Receive Date: 20130930
  Receipt Date: 20130930
  Transmission Date: 20140515
  Serious: No
  Sender: FDA-Public Use
  Company Number: 1000047994

PATIENT
  Age: 65 Year
  Sex: Female

DRUGS (9)
  1. LINZESS [Suspect]
     Indication: CONSTIPATION
     Dosage: 145 MCG (145 MCG, 1 IN 1 D)
     Dates: start: 201307, end: 201308
  2. CALCIUM (CALCIUM) (CALCIUM) [Concomitant]
  3. VITAMIN D (CHOLECALCIFEROL) (CHOLECALCIFEROL) [Concomitant]
  4. ALLEGRA (FEXOFENADINE HYDROCHLORIDE) (FEXOFENADINE HYDROCHLORIDE) [Concomitant]
  5. OMEPRAZOLE (OMEPRAZOLE) (OMEPRAZOLE) [Concomitant]
  6. BUSPAR (BUSPIRONE HYDROCHLORIDE) (BUSPIRONE HYDROCHLORIDE) [Concomitant]
  7. CYMBALTA (DULOXETINE HYDROCHLORIDE) (DULOXETINE HYDROCHLORIDE) [Concomitant]
  8. RED YEAST RICE (MONASCUS PURPUREUS) (MONASCUS PURPUREUS) [Concomitant]
  9. FLAXSEED OIL (LINUM USITATISSIMUM SEED OIL) (LINUM USITATISSIMUM SEED OIL) [Concomitant]

REACTIONS (1)
  - Diarrhoea [None]
